FAERS Safety Report 7564834-7 (Version None)
Quarter: 2011Q2

REPORT INFORMATION
  Report Type: 
  Country: None (occurrence: None)
  Receive Date: 20110622
  Receipt Date: 20101220
  Transmission Date: 20111010
  Serious: Yes (Other)
  Sender: FDA-Public Use
  Company Number: US-MYLANLABS-2010S1023477

PATIENT
  Age: 53 Year
  Sex: Male

DRUGS (7)
  1. CHLORAL HYDRATE [Concomitant]
     Route: 048
  2. METOPROLOL SUCCINATE [Concomitant]
     Route: 048
  3. PHENOBARBITAL [Concomitant]
     Route: 048
  4. TRAZODONE HCL [Concomitant]
     Route: 048
  5. LEVOTHYROXINE SODIUM [Concomitant]
     Route: 048
  6. CLOZAPINE [Suspect]
     Route: 048
     Dates: end: 20101215
  7. CRESTOR [Concomitant]
     Route: 048

REACTIONS (2)
  - GRANULOCYTOPENIA [None]
  - LEUKOPENIA [None]
